FAERS Safety Report 4715024-4 (Version None)
Quarter: 2005Q2

REPORT INFORMATION
  Report Type: 
  Country: None (occurrence: None)
  Receive Date: 20050630
  Receipt Date: 20050314
  Transmission Date: 20051028
  Serious: Yes (Other)
  Sender: FDA-Public Use
  Company Number: 212423

PATIENT
  Age: 73 Year
  Sex: Female

DRUGS (16)
  1. AVASTIN [Suspect]
     Indication: RENAL CELL CARCINOMA STAGE UNSPECIFIED
     Dosage: 15 MG/KG, INTRAVENOUS; 10 MG/KG, INTRAVENOUS
     Route: 042
     Dates: start: 20050114, end: 20050211
  2. AVASTIN [Suspect]
     Indication: RENAL CELL CARCINOMA STAGE UNSPECIFIED
     Dosage: 15 MG/KG, INTRAVENOUS; 10 MG/KG, INTRAVENOUS
     Route: 042
     Dates: start: 20050107
  3. ASPIRIN [Concomitant]
  4. DILTIAZEM CD (DILTIAZME HYDROCHLORIDE) [Concomitant]
  5. PREDNISONE [Concomitant]
  6. CALCITRIOL [Concomitant]
  7. LISINOPRIL [Concomitant]
  8. FERGON (UNITED STATES) (FERROUS GLUCONATE) [Concomitant]
  9. COLACE (DOCUSATE SODIUM) [Concomitant]
  10. HYDROCODONE/APAP (HYDROCODONE BITARTRATE, ACETAMINOPHEN) [Concomitant]
  11. AMBIEN [Concomitant]
  12. KAOPECTATE (PECTIN, KAOLIN) [Concomitant]
  13. ALBUTEROL NEBULIZER (ALBUTEROL, ALBUTEROL SULFATE) [Concomitant]
  14. AZMACORT INHALER (TRIAMCINOLONE ACETONIDE) [Concomitant]
  15. TYLENOL [Concomitant]
  16. PROMETHEZINE HCL [Concomitant]

REACTIONS (4)
  - CHILLS [None]
  - HEADACHE [None]
  - HYPERTENSION [None]
  - RETCHING [None]
